FAERS Safety Report 9526425 (Version 1)
Quarter: 2013Q3

REPORT INFORMATION
  Report Type: Spontaneous
  Country: GB (occurrence: GB)
  Receive Date: 20130916
  Receipt Date: 20130916
  Transmission Date: 20140515
  Serious: Yes (Hospitalization, Other)
  Sender: FDA-Public Use
  Company Number: GB-WATSON-2013-15811

PATIENT
  Age: 81 Year
  Sex: Female

DRUGS (1)
  1. CIPROFLOXACIN HYDROCHLORIDE (UNKNOWN) [Suspect]
     Indication: LOWER RESPIRATORY TRACT INFECTION
     Dosage: 500 MG, BID
     Route: 048
     Dates: end: 20121107

REACTIONS (2)
  - Vomiting [Recovered/Resolved]
  - Treatment failure [Recovered/Resolved]
